FAERS Safety Report 9685149 (Version 1)
Quarter: 2013Q4

REPORT INFORMATION
  Report Type: Spontaneous
  Country: US (occurrence: None)
  Receive Date: 20131111
  Receipt Date: 20131111
  Transmission Date: 20140711
  Serious: Yes (Other)
  Sender: FDA-Public Use
  Company Number: None

PATIENT
  Age: 32 Year
  Sex: Female
  Weight: 81.65 kg

DRUGS (1)
  1. VENLAFAXINE [Suspect]
     Indication: DEPRESSION
     Route: 048

REACTIONS (10)
  - Drug withdrawal syndrome [None]
  - Headache [None]
  - Nausea [None]
  - Hyperhidrosis [None]
  - Chills [None]
  - Hypoacusis [None]
  - Impaired work ability [None]
  - Disturbance in attention [None]
  - Diarrhoea [None]
  - Paraesthesia [None]
